FAERS Safety Report 18388302 (Version 3)
Quarter: 2021Q2

REPORT INFORMATION
  Report Type: Report from Study
  Country: US (occurrence: US)
  Receive Date: 20201015
  Receipt Date: 20210615
  Transmission Date: 20210717
  Serious: No
  Sender: FDA-Public Use
  Company Number: NVSC2020US277273

PATIENT
  Age: 61 Year
  Sex: Male

DRUGS (1)
  1. ENTRESTO [Suspect]
     Active Substance: SACUBITRIL\VALSARTAN
     Indication: CARDIAC FAILURE CHRONIC
     Dosage: UNK
     Route: 065

REACTIONS (2)
  - Ejection fraction decreased [Unknown]
  - Somnolence [Unknown]
